FAERS Safety Report 7679751-1 (Version None)
Quarter: 2011Q3

REPORT INFORMATION
  Report Type: 
  Country: None (occurrence: None)
  Receive Date: 20110812
  Receipt Date: 20110711
  Transmission Date: 20111222
  Serious: Yes (Hospitalization, Other)
  Sender: FDA-Public Use
  Company Number: US-BAYER-200937856NA

PATIENT
  Sex: Male
  Weight: 127 kg

DRUGS (42)
  1. ALBUMIN (HUMAN) [Concomitant]
     Indication: PRODUCT USED FOR UNKNOWN INDICATION
  2. FENTANYL [Concomitant]
     Indication: PRODUCT USED FOR UNKNOWN INDICATION
  3. SODIUM BICARBONATE [Concomitant]
     Indication: PRODUCT USED FOR UNKNOWN INDICATION
  4. ACIPHEX [Concomitant]
     Dosage: 20 MG, UNK
     Route: 048
  5. ACETYLSALICYLIC ACID SRT [Concomitant]
     Indication: PRODUCT USED FOR UNKNOWN INDICATION
     Dosage: 325 MG, UNK
     Route: 048
  6. LEVOPHED [Concomitant]
     Indication: PRODUCT USED FOR UNKNOWN INDICATION
  7. EPINEPHRINE [Concomitant]
     Indication: PRODUCT USED FOR UNKNOWN INDICATION
  8. LIPITOR [Concomitant]
     Indication: PRODUCT USED FOR UNKNOWN INDICATION
     Route: 048
  9. ISOFLURANE [Concomitant]
     Indication: PRODUCT USED FOR UNKNOWN INDICATION
  10. VERSED [Concomitant]
     Indication: PRODUCT USED FOR UNKNOWN INDICATION
  11. NITROGLYCERIN [Concomitant]
     Indication: PRODUCT USED FOR UNKNOWN INDICATION
  12. CEFAZOLIN [Concomitant]
     Indication: PRODUCT USED FOR UNKNOWN INDICATION
  13. NOVOLIN [INSULIN] [Concomitant]
     Dosage: 75 U, BID
     Route: 058
  14. TRASYLOL [Suspect]
     Indication: CORONARY ARTERY BYPASS
     Route: 042
     Dates: start: 20040715
  15. AMLODIPINE [Concomitant]
     Indication: PRODUCT USED FOR UNKNOWN INDICATION
     Dosage: 5 MG, UNK
     Route: 048
  16. LIDOCAINE [Concomitant]
     Indication: PRODUCT USED FOR UNKNOWN INDICATION
  17. MILRINONE [Concomitant]
     Indication: PRODUCT USED FOR UNKNOWN INDICATION
  18. MANNITOL [Concomitant]
     Indication: PRODUCT USED FOR UNKNOWN INDICATION
  19. MAGNESIUM SULFATE [Concomitant]
     Indication: PRODUCT USED FOR UNKNOWN INDICATION
  20. TRASYLOL [Suspect]
     Dosage: 25ML/HOUR DRIP
     Route: 042
     Dates: start: 20040715, end: 20040715
  21. AVAPRO [Concomitant]
     Indication: TYPE 2 DIABETES MELLITUS
     Dosage: 150 MG, UNK
     Route: 048
  22. INSULIN [Concomitant]
     Indication: PRODUCT USED FOR UNKNOWN INDICATION
     Route: 048
  23. SODIUM CHLORIDE [Concomitant]
     Indication: PRODUCT USED FOR UNKNOWN INDICATION
  24. ZAROXOLYN [Concomitant]
     Indication: PRODUCT USED FOR UNKNOWN INDICATION
     Route: 048
  25. ETOMIDATE [Concomitant]
     Indication: PRODUCT USED FOR UNKNOWN INDICATION
  26. SUCCINYLCHOLINE CHLORIDE [Concomitant]
     Indication: PRODUCT USED FOR UNKNOWN INDICATION
  27. SUFENTA PRESERVATIVE FREE [Concomitant]
     Indication: PRODUCT USED FOR UNKNOWN INDICATION
  28. AMIODARONE HCL [Concomitant]
     Indication: PRODUCT USED FOR UNKNOWN INDICATION
  29. ZESTRIL [Concomitant]
     Dosage: 30 MG, QD
     Route: 048
  30. ADVAIR DISKUS 100/50 [Concomitant]
     Dosage: 100/50 UNK, INHALED, BID
  31. TRASYLOL [Suspect]
  32. HEPARIN [Concomitant]
     Indication: PRODUCT USED FOR UNKNOWN INDICATION
  33. PAPAVERINE [Concomitant]
     Indication: PRODUCT USED FOR UNKNOWN INDICATION
  34. MARCAINE [Concomitant]
     Indication: PRODUCT USED FOR UNKNOWN INDICATION
  35. MECLIZINE [Concomitant]
     Dosage: UNK UNK, PRN
  36. ZOLOFT [Concomitant]
     Dosage: 50 MG, QD
  37. TRASYLOL [Suspect]
     Dosage: UNKNOWN LOADING DOSE
     Route: 042
     Dates: start: 20040715, end: 20040715
  38. PAVULON [Concomitant]
     Indication: PRODUCT USED FOR UNKNOWN INDICATION
  39. PROTAMINE [Concomitant]
     Indication: PRODUCT USED FOR UNKNOWN INDICATION
  40. PLATELETS [Concomitant]
  41. RED BLOOD CELLS [Concomitant]
  42. XANAX [Concomitant]
     Dosage: 0.5 MG, PRN
     Route: 048

REACTIONS (10)
  - RENAL INJURY [None]
  - INJURY [None]
  - PAIN [None]
  - EMOTIONAL DISTRESS [None]
  - ANXIETY [None]
  - STRESS [None]
  - UNEVALUABLE EVENT [None]
  - FEAR [None]
  - RENAL FAILURE [None]
  - RENAL IMPAIRMENT [None]
